FAERS Safety Report 17365060 (Version 1)
Quarter: 2020Q1

REPORT INFORMATION
  Report Type: Spontaneous
  Country: US (occurrence: US)
  Receive Date: 20200204
  Receipt Date: 20200204
  Transmission Date: 20200409
  Serious: No
  Sender: FDA-Public Use
  Company Number: US-TEVA-2020-US-1178864

PATIENT
  Age: 70 Year
  Sex: Female

DRUGS (1)
  1. BUDESONIDE. [Suspect]
     Active Substance: BUDESONIDE
     Indication: COELIAC DISEASE
     Dosage: ENTERIC-RELEASE
     Route: 048

REACTIONS (1)
  - Constipation [Unknown]
